FAERS Safety Report 6599868-2 (Version None)
Quarter: 2010Q1

REPORT INFORMATION
  Report Type: 
  Country: None (occurrence: None)
  Receive Date: 20100224
  Receipt Date: 20100217
  Transmission Date: 20100710
  Serious: Yes (Other)
  Sender: FDA-Public Use
  Company Number: NL-JNJFOC-20090705699

PATIENT
  Sex: Female
  Weight: 63 kg

DRUGS (5)
  1. INFLIXIMAB [Suspect]
     Indication: CROHN'S DISEASE
     Route: 042
  2. INFLIXIMAB [Suspect]
     Route: 042
  3. INFLIXIMAB [Suspect]
     Route: 042
  4. INFLIXIMAB [Suspect]
     Route: 042
  5. FOLIC ACID [Concomitant]
     Indication: NUTRITIONAL SUPPORT

REACTIONS (2)
  - DRUG EXPOSURE DURING PREGNANCY [None]
  - PERINEAL LACERATION [None]
